FAERS Safety Report 5444530-2 (Version None)
Quarter: 2007Q3

REPORT INFORMATION
  Report Type: 
  Country: None (occurrence: None)
  Receive Date: 20070906
  Receipt Date: 20070829
  Transmission Date: 20080115
  Serious: Yes (Life-Threatening, Hospitalization)
  Sender: FDA-Public Use
  Company Number: GB-AMGEN-US209785

PATIENT
  Sex: Female
  Weight: 54 kg

DRUGS (5)
  1. ENBREL [Suspect]
     Indication: RHEUMATOID ARTHRITIS
     Route: 058
     Dates: start: 20040701
  2. CODEINE PHOSPHATE AND ACETAMINOPHEN [Concomitant]
     Dosage: UNKNOWN
  3. VOLTAREN [Concomitant]
     Dosage: 100MG DAILY FREQUENCY UNKNOWN
  4. LANSOPRAZOLE [Concomitant]
     Dosage: 30MG DAILY FREQUENCY UNKNOWN
  5. PREDNISOLONE [Concomitant]
     Dosage: 1MG DAILY FREQUENCY UNKNOWN

REACTIONS (1)
  - MYOCARDIAL INFARCTION [None]
